FAERS Safety Report 8793769 (Version 2)
Quarter: 2012Q4

REPORT INFORMATION
  Report Type: 
  Country: US (occurrence: US)
  Receive Date: 20120918
  Receipt Date: 20121130
  Transmission Date: 20130627
  Serious: Yes (Hospitalization)
  Sender: FDA-Public Use
  Company Number: US-BAYER-2012-096250

PATIENT
  Age: 39 Year
  Sex: Female
  Weight: 93.88 kg

DRUGS (2)
  1. BEYAZ [Suspect]
     Indication: IRREGULAR MENSTRUAL CYCLE
     Dosage: UNK
     Dates: start: 201107, end: 201201
  2. BEYAZ [Suspect]
     Indication: PAINFUL PERIODS

REACTIONS (6)
  - Portal vein thrombosis [None]
  - Mesenteric vein thrombosis [None]
  - Dyspnoea [None]
  - Emotional distress [None]
  - Mental disorder [None]
  - Off label use [None]
